FAERS Safety Report 8493545-9 (Version None)
Quarter: 2012Q3

REPORT INFORMATION
  Report Type: 
  Country: None (occurrence: None)
  Receive Date: 20120706
  Receipt Date: 20120626
  Transmission Date: 20120928
  Serious: No
  Sender: FDA-Public Use
  Company Number: US-B.I. PHARMACEUTICALS,INC./RIDGEFIELD-2012-BP-14546BP

PATIENT
  Sex: Female

DRUGS (8)
  1. ZOLOFT [Concomitant]
     Dosage: 100 MG
  2. VICODIN [Concomitant]
  3. PRADAXA [Suspect]
     Indication: FACTOR V DEFICIENCY
     Dosage: 300 MG
     Dates: start: 20120327
  4. ADVAIR DISKUS 100/50 [Concomitant]
  5. COMBIVENT [Suspect]
     Indication: ASTHMA
     Route: 048
  6. OMEPRAZOLE [Concomitant]
     Dosage: 20 MG
  7. ATIVAN [Concomitant]
  8. VENTOLIN HFA [Concomitant]
     Route: 048

REACTIONS (1)
  - DIARRHOEA [None]
